FAERS Safety Report 17301375 (Version 4)
Quarter: 2020Q1

REPORT INFORMATION
  Report Type: Report from Study
  Country: US (occurrence: US)
  Receive Date: 20200122
  Receipt Date: 20200330
  Transmission Date: 20200409
  Serious: Yes (Other)
  Sender: FDA-Public Use
  Company Number: NVSC2020US015047

PATIENT
  Sex: Female

DRUGS (2)
  1. ENTRESTO [Suspect]
     Active Substance: SACUBITRIL\VALSARTAN
     Indication: PRODUCT USED FOR UNKNOWN INDICATION
     Dosage: 1 DF, BID (24 MG OF SACUBITRIL/ 26 MG OF VALSARTAN)
     Route: 048
     Dates: start: 201911
  2. ENTRESTO [Suspect]
     Active Substance: SACUBITRIL\VALSARTAN
     Dosage: 1 DF, BID (49 MG  SACUBITRIL/ 51MG VALSARTAN)
     Route: 048

REACTIONS (6)
  - Crohn^s disease [Unknown]
  - Wrong technique in product usage process [Unknown]
  - Hypotension [Unknown]
  - Odynophagia [Unknown]
  - Gastrooesophageal reflux disease [Unknown]
  - Asthenia [Unknown]
